FAERS Safety Report 16465538 (Version 1)
Quarter: 2019Q2

REPORT INFORMATION
  Report Type: Spontaneous
  Country: US (occurrence: US)
  Receive Date: 20190621
  Receipt Date: 20190621
  Transmission Date: 20190711
  Serious: No
  Sender: FDA-Public Use
  Company Number: US-EGALET US INC-US-2018EGA000978

PATIENT

DRUGS (2)
  1. SPRIX [Suspect]
     Active Substance: KETOROLAC TROMETHAMINE
     Indication: PAIN
     Dosage: ONE SPRAY NASALLY EVERY 6-8 HOURS
     Route: 045
     Dates: start: 20180913
  2. SPRIX [Suspect]
     Active Substance: KETOROLAC TROMETHAMINE
     Dosage: UNK

REACTIONS (3)
  - Wrong technique in product usage process [Recovered/Resolved]
  - Sneezing [Recovered/Resolved]
  - Nasal discomfort [Recovered/Resolved]

NARRATIVE: CASE EVENT DATE: 20180913
